FAERS Safety Report 4583771-3 (Version None)
Quarter: 2005Q1

REPORT INFORMATION
  Report Type: 
  Country: None (occurrence: None)
  Receive Date: 20050216
  Receipt Date: 20050207
  Transmission Date: 20050727
  Serious: Yes (Other)
  Sender: FDA-Public Use
  Company Number: 200511313GDDC

PATIENT
  Age: 28 Year
  Sex: Female

DRUGS (10)
  1. RIFADIN [Suspect]
  2. ETHAMBUTOL HCL [Suspect]
  3. ISONIAZID [Suspect]
     Route: 048
  4. TEBRAZID [Suspect]
  5. LEVOFLOXACIN [Concomitant]
  6. MYCOPHENOLATE MOFETIL [Concomitant]
  7. PREDNISONE [Concomitant]
  8. PYRIDOXINE HCL [Concomitant]
  9. STREPTOMYCIN [Concomitant]
  10. TACROLIMUS [Concomitant]
     Dosage: DOSE: FK 506

REACTIONS (17)
  - ALANINE AMINOTRANSFERASE INCREASED [None]
  - ASCITES [None]
  - ASPARTATE AMINOTRANSFERASE INCREASED [None]
  - DIZZINESS [None]
  - ENCEPHALOPATHY [None]
  - EOSINOPHILIA [None]
  - HEPATIC NECROSIS [None]
  - HEPATOMEGALY [None]
  - HYPOTENSION [None]
  - LEUKOCYTOSIS [None]
  - NAUSEA [None]
  - OEDEMA [None]
  - PROTHROMBIN LEVEL DECREASED [None]
  - PYREXIA [None]
  - RASH MACULO-PAPULAR [None]
  - TACHYCARDIA [None]
  - VOMITING [None]
